FAERS Safety Report 9443383 (Version 1)
Quarter: 2013Q3

REPORT INFORMATION
  Report Type: Spontaneous
  Country: US (occurrence: US)
  Receive Date: 20130806
  Receipt Date: 20130806
  Transmission Date: 20140515
  Serious: Yes (Other)
  Sender: FDA-Public Use
  Company Number: PHHY2013US080722

PATIENT
  Age: 6 Year
  Sex: Female

DRUGS (2)
  1. METHYLPHENIDATE [Suspect]
     Dosage: 10 MG, DAILY
  2. DEPAKOTE [Concomitant]
     Dosage: 20 UG/KG, DAILY

REACTIONS (7)
  - Postictal state [Recovered/Resolved]
  - Grand mal convulsion [Recovered/Resolved]
  - Abnormal behaviour [Recovered/Resolved]
  - Regressive behaviour [Recovered/Resolved]
  - Irritability [Recovered/Resolved]
  - Agitation [Recovered/Resolved]
  - Tic [Recovered/Resolved]
